FAERS Safety Report 24406881 (Version 3)
Quarter: 2024Q4

REPORT INFORMATION
  Report Type: Spontaneous
  Country: CZ (occurrence: CZ)
  Receive Date: 20241007
  Receipt Date: 20241014
  Transmission Date: 20250115
  Serious: Yes (Life-Threatening, Hospitalization, Other)
  Sender: SANOFI AVENTIS
  Company Number: CZ-ASTELLAS-2024-AER-009643

PATIENT
  Age: 49 Year
  Sex: Male
  Weight: 95 kg

DRUGS (16)
  1. PAROXETINE HYDROCHLORIDE [Suspect]
     Active Substance: PAROXETINE HYDROCHLORIDE
     Indication: Suicide attempt
     Dosage: 1 G, TOTAL (SUICIDE ATTEMPT CONSUMING AROUND 50 20 MG TABLETS OF PAROXETINE (APO-PAROX), I.E., 1 G O
     Route: 048
     Dates: start: 202102
  2. PAROXETINE HYDROCHLORIDE [Suspect]
     Active Substance: PAROXETINE HYDROCHLORIDE
     Indication: Panic disorder
     Dosage: 60 MG, QD (FOR MORE THAN 6 YEARS)
     Route: 048
  3. PAROXETINE HYDROCHLORIDE [Suspect]
     Active Substance: PAROXETINE HYDROCHLORIDE
     Indication: Agoraphobia
  4. METOPROLOL [Concomitant]
     Active Substance: METOPROLOL
     Indication: Hypertension
     Dosage: UNK (INTERMITTENTLY TAKING)
  5. METOPROLOL [Concomitant]
     Active Substance: METOPROLOL
     Dosage: 25 MG, QD
  6. METOPROLOL [Concomitant]
     Active Substance: METOPROLOL
     Dosage: INTERMITTENTLY TAKING
  7. CLONAZEPAM [Concomitant]
     Active Substance: CLONAZEPAM
     Dosage: 6 MG, QD
  8. CLONAZEPAM [Concomitant]
     Active Substance: CLONAZEPAM
     Dosage: 7.5 MG, QD
     Route: 042
  9. CLONAZEPAM [Concomitant]
     Active Substance: CLONAZEPAM
     Dosage: 6 MG, QD
     Route: 042
  10. CLONAZEPAM [Concomitant]
     Active Substance: CLONAZEPAM
     Dosage: UNK, FROM  DAY 16
     Route: 048
  11. CLONAZEPAM [Concomitant]
     Active Substance: CLONAZEPAM
     Dosage: UNK (GRADUALLY DECREASED AND DISCONTINUED ON DAY 47)
  12. CLONAZEPAM [Concomitant]
     Active Substance: CLONAZEPAM
     Dosage: 6.000MG QD
  13. ALPRAZOLAM [Concomitant]
     Active Substance: ALPRAZOLAM
     Dosage: 2 MG, QD
  14. ALPRAZOLAM [Concomitant]
     Active Substance: ALPRAZOLAM
     Dosage: 2.000MG QD
  15. CEFUROXIME [Concomitant]
     Active Substance: CEFUROXIME
     Indication: Urinary tract infection
     Dosage: UNK
  16. TIAPRIDE [Concomitant]
     Active Substance: TIAPRIDE
     Indication: Antipsychotic therapy
     Dosage: 200 MG, QD

REACTIONS (30)
  - Cerebral venous sinus thrombosis [Unknown]
  - Hypercoagulation [Unknown]
  - Toxicity to various agents [Recovered/Resolved]
  - Intentional overdose [Recovered/Resolved]
  - Hyperhidrosis [Recovered/Resolved]
  - Constipation [Recovered/Resolved]
  - Pyrexia [Recovered/Resolved]
  - Delirium [Recovered/Resolved]
  - Consciousness fluctuating [Recovered/Resolved]
  - Anxiety [Recovered/Resolved]
  - Tremor [Recovered/Resolved]
  - Depressed mood [Recovered/Resolved]
  - Disorientation [Recovered/Resolved]
  - Affect lability [Recovered/Resolved]
  - Psychomotor hyperactivity [Recovered/Resolved]
  - Incoherent [Recovered/Resolved]
  - Agitation [Recovered/Resolved]
  - Patient uncooperative [Recovered/Resolved]
  - Abnormal behaviour [Recovered/Resolved]
  - Negativism [Recovered/Resolved]
  - Verbigeration [Recovered/Resolved]
  - Grimacing [Recovered/Resolved]
  - Athetosis [Recovered/Resolved]
  - Hallucination, auditory [Recovered/Resolved]
  - Delusion [Recovered/Resolved]
  - Cognitive disorder [Recovered/Resolved]
  - Thinking abnormal [Recovered/Resolved]
  - Aggression [Recovered/Resolved]
  - Urinary retention [Recovered/Resolved]
  - Sinus tachycardia [Unknown]

NARRATIVE: CASE EVENT DATE: 20210101
